FAERS Safety Report 8494478-4 (Version None)
Quarter: 2012Q2

REPORT INFORMATION
  Report Type: 
  Country: None (occurrence: None)
  Receive Date: 20120627
  Receipt Date: 20120615
  Transmission Date: 20120825
  Serious: Yes (Life-Threatening, Hospitalization)
  Sender: FDA-Public Use
  Company Number: 2012HGS-003646

PATIENT
  Age: 34 Year
  Sex: Female

DRUGS (4)
  1. METHOTREXATE SODIUM [Concomitant]
  2. HYDROXYCHLOROQUINE SULFATE [Concomitant]
  3. PREDNISOLONE [Concomitant]
  4. BENLYSTA [Suspect]
     Indication: SYSTEMIC LUPUS ERYTHEMATOSUS
     Dosage: INTRAVENOUS DRIP
     Route: 041
     Dates: start: 20120326, end: 20120326

REACTIONS (6)
  - CARDIOVASCULAR DISORDER [None]
  - PERIPHERAL VASCULAR DISORDER [None]
  - MALAISE [None]
  - CHILLS [None]
  - HYPERSENSITIVITY [None]
  - DIZZINESS [None]
